FAERS Safety Report 15207360 (Version 2)
Quarter: 2018Q3

REPORT INFORMATION
  Report Type: Spontaneous
  Country: US (occurrence: US)
  Receive Date: 20180727
  Receipt Date: 20180828
  Transmission Date: 20181010
  Serious: Yes (Hospitalization)
  Sender: FDA-Public Use
  Company Number: US-ASTRAZENECA-2018SE94911

PATIENT
  Sex: Female
  Weight: 38.6 kg

DRUGS (2)
  1. TUDORZA PRESSAIR [Suspect]
     Active Substance: ACLIDINIUM BROMIDE
     Route: 055
  2. OXYGEN. [Concomitant]
     Active Substance: OXYGEN

REACTIONS (6)
  - Device malfunction [Unknown]
  - Dyspnoea [Unknown]
  - Sinus disorder [Unknown]
  - Drug dose omission [Unknown]
  - Pneumonia [Unknown]
  - Intentional device misuse [Unknown]
